FAERS Safety Report 8473920 (Version 3)
Quarter: 2013Q2

REPORT INFORMATION
  Report Type: Spontaneous
  Country: CA (occurrence: CA)
  Receive Date: 20120323
  Receipt Date: 20130510
  Transmission Date: 20140414
  Serious: Yes (Life-Threatening)
  Sender: FDA-Public Use
  Company Number: CA-JNJFOC-20120307347

PATIENT
  Age: 36 Year
  Sex: Female
  Weight: 68.3 kg

DRUGS (7)
  1. REMICADE [Suspect]
     Indication: CROHN^S DISEASE
     Route: 042
     Dates: start: 20120315, end: 201205
  2. REMICADE [Suspect]
     Indication: CROHN^S DISEASE
     Route: 042
     Dates: start: 201201
  3. REMICADE [Suspect]
     Indication: CROHN^S DISEASE
     Route: 042
     Dates: start: 201206, end: 20120721
  4. LYRICA [Concomitant]
     Route: 065
  5. CIPRALEX [Concomitant]
     Route: 065
  6. UNSPECIFIED BIRTH CONTROL [Concomitant]
     Indication: CONTRACEPTION
     Route: 065
  7. IMURAN [Concomitant]
     Indication: CROHN^S DISEASE
     Route: 065

REACTIONS (5)
  - Anaphylactic reaction [Unknown]
  - Infusion related reaction [Unknown]
  - Dyspnoea [Unknown]
  - Face oedema [Unknown]
  - Ocular hyperaemia [Unknown]
